FAERS Safety Report 10407461 (Version 8)
Quarter: 2016Q2

REPORT INFORMATION
  Report Type: Report from Study
  Country: DE (occurrence: DE)
  Receive Date: 20140825
  Receipt Date: 20160408
  Transmission Date: 20160815
  Serious: Yes (Hospitalization, Other)
  Sender: FDA-Public Use
  Company Number: PHHY2014DE044813

PATIENT
  Sex: Female
  Weight: 89 kg

DRUGS (2)
  1. EXEMESTAN STADA [Concomitant]
     Active Substance: EXEMESTANE
     Indication: BREAST CANCER METASTATIC
     Dosage: 25 MG, QD
     Route: 048
     Dates: start: 20131209, end: 20140419
  2. AFINITOR [Suspect]
     Active Substance: EVEROLIMUS
     Indication: BREAST CANCER METASTATIC
     Dosage: 5 MG, QD
     Route: 048
     Dates: start: 20131215, end: 20140419

REACTIONS (7)
  - Flatulence [Recovered/Resolved]
  - Weight decreased [Unknown]
  - General physical health deterioration [Recovered/Resolved]
  - Malignant neoplasm progression [Unknown]
  - Cough [Recovered/Resolved]
  - Blood glucose increased [Recovered/Resolved]
  - Nutritional condition abnormal [Recovered/Resolved]

NARRATIVE: CASE EVENT DATE: 20140228
